FAERS Safety Report 4632502-7 (Version None)
Quarter: 2005Q2

REPORT INFORMATION
  Report Type: 
  Country: None (occurrence: None)
  Receive Date: 20050411
  Receipt Date: 20050401
  Transmission Date: 20051028
  Serious: Yes (Other)
  Sender: FDA-Public Use
  Company Number: NL-ABBOTT-05P-114-0296105-00

PATIENT
  Sex: Male

DRUGS (2)
  1. DEPAKENE [Suspect]
     Indication: DRUG USE FOR UNKNOWN INDICATION
     Route: 048
     Dates: start: 20010807
  2. TERBINAFINE HCL [Interacting]
     Indication: TINEA PEDIS
     Route: 048
     Dates: start: 20050307, end: 20050308

REACTIONS (8)
  - AMNESIA [None]
  - DISORIENTATION [None]
  - DRUG INTERACTION [None]
  - EPILEPSY [None]
  - GAIT DISTURBANCE [None]
  - LOSS OF CONSCIOUSNESS [None]
  - ROAD TRAFFIC ACCIDENT [None]
  - SYNCOPE [None]
